FAERS Safety Report 14301749 (Version 1)
Quarter: 2017Q4

REPORT INFORMATION
  Report Type: Report from Study
  Country: KR (occurrence: KR)
  Receive Date: 20171219
  Receipt Date: 20171219
  Transmission Date: 20180321
  Serious: Yes (Hospitalization)
  Sender: FDA-Public Use
  Company Number: KR-JNJFOC-20161122451

PATIENT
  Age: 25 Year
  Sex: Male
  Weight: 79 kg

DRUGS (5)
  1. USTEKINUMAB [Suspect]
     Active Substance: USTEKINUMAB
     Indication: AXIAL SPONDYLOARTHRITIS
     Route: 058
     Dates: start: 20160921
  2. PARAMACET [Concomitant]
     Active Substance: ACETAMINOPHEN\TRAMADOL
     Indication: AXIAL SPONDYLOARTHRITIS
     Route: 048
     Dates: start: 20150325
  3. GASLON [Concomitant]
     Active Substance: IRSOGLADINE MALEATE
     Indication: GASTROINTESTINAL DISORDER THERAPY
     Route: 048
     Dates: start: 20161107, end: 20161116
  4. CELECOXIB. [Concomitant]
     Active Substance: CELECOXIB
     Indication: AXIAL SPONDYLOARTHRITIS
     Route: 048
     Dates: start: 20150325
  5. SULFASALAZINE. [Concomitant]
     Active Substance: SULFASALAZINE
     Indication: AXIAL SPONDYLOARTHRITIS
     Route: 048
     Dates: start: 20150325

REACTIONS (1)
  - Chronic sinusitis [Recovered/Resolved]

NARRATIVE: CASE EVENT DATE: 20161024
